FAERS Safety Report 23847698 (Version 1)
Quarter: 2024Q2

REPORT INFORMATION
  Report Type: Spontaneous
  Country: US (occurrence: None)
  Receive Date: 20240510
  Receipt Date: 20240510
  Transmission Date: 20240716
  Serious: Yes (Other)
  Sender: FDA-Public Use
  Company Number: None

PATIENT
  Age: 80 Year
  Sex: Male
  Weight: 87.75 kg

DRUGS (18)
  1. ABIRATERONE [Suspect]
     Active Substance: ABIRATERONE
     Indication: Prostate cancer metastatic
     Dosage: OTHER QUANTITY : 4 TABLET(S);?FREQUENCY : AT BEDTIME;?
     Route: 048
     Dates: start: 20240307, end: 20240410
  2. FAMOTIDINE [Concomitant]
     Active Substance: FAMOTIDINE
  3. EZETIMIBE [Concomitant]
     Active Substance: EZETIMIBE
  4. FLOMAX [Concomitant]
     Active Substance: TAMSULOSIN HYDROCHLORIDE
  5. LUPRON DEPOT [Concomitant]
     Active Substance: LEUPROLIDE ACETATE
  6. PREDNISONE [Concomitant]
     Active Substance: PREDNISONE
  7. ALPRAZOLAM [Concomitant]
     Active Substance: ALPRAZOLAM
  8. PRAVASTATIN [Concomitant]
     Active Substance: PRAVASTATIN
  9. CHLORTHALIDONE [Suspect]
     Active Substance: CHLORTHALIDONE
  10. CELECOXIB [Suspect]
     Active Substance: CELECOXIB
  11. CYCLOBENZAPRINE [Concomitant]
     Active Substance: CYCLOBENZAPRINE
  12. SYNTHROID [Concomitant]
     Active Substance: LEVOTHYROXINE SODIUM
  13. CLONIDINE [Concomitant]
     Active Substance: CLONIDINE
  14. ZOLPIDEM [Concomitant]
     Active Substance: ZOLPIDEM TARTRATE
  15. CARVEDILOL [Concomitant]
     Active Substance: CARVEDILOL
  16. ABIRATERONE [Concomitant]
     Active Substance: ABIRATERONE
  17. VITAMINS [Concomitant]
     Active Substance: VITAMINS
  18. ASA-81MG [Concomitant]

REACTIONS (1)
  - Prostate cancer stage IV [None]

NARRATIVE: CASE EVENT DATE: 20240410
